FAERS Safety Report 4394739-4 (Version None)
Quarter: 2004Q3

REPORT INFORMATION
  Report Type: 
  Country: None (occurrence: None)
  Receive Date: 20040712
  Receipt Date: 20040629
  Transmission Date: 20050211
  Serious: Yes (Other)
  Sender: FDA-Public Use
  Company Number: PHBS2004SE08745

PATIENT

DRUGS (1)
  1. DICLOFENAC [Suspect]

REACTIONS (1)
  - CHOLESTASIS [None]
